FAERS Safety Report 7146335-3 (Version None)
Quarter: 2010Q4

REPORT INFORMATION
  Report Type: 
  Country: None (occurrence: None)
  Receive Date: 20101208
  Receipt Date: 20101110
  Transmission Date: 20110411
  Serious: No
  Sender: FDA-Public Use
  Company Number: US-BAYER-2010-001772

PATIENT
  Sex: Female
  Weight: 70.295 kg

DRUGS (4)
  1. ALEVE [Suspect]
     Indication: PRODUCT USED FOR UNKNOWN INDICATION
     Dosage: 440 MG, UNK
     Dates: start: 20080101
  2. ALEVE [Suspect]
     Dosage: UNK
     Dates: start: 20100101
  3. UNCODEABLE ^UNCLASSIFIABLE^ [Concomitant]
  4. WELLBUTRIN [Concomitant]

REACTIONS (1)
  - URTICARIA [None]
